FAERS Safety Report 11904434 (Version 1)
Quarter: 2016Q1

REPORT INFORMATION
  Report Type: Spontaneous
  Country: US (occurrence: US)
  Receive Date: 20160111
  Receipt Date: 20160111
  Transmission Date: 20160526
  Serious: No
  Sender: FDA-Public Use
  Company Number: US-ASTRAZENECA-2016SE00166

PATIENT
  Age: 80 Year
  Sex: Female

DRUGS (4)
  1. ASPIRIN. [Concomitant]
     Active Substance: ASPIRIN
     Indication: ARTERIAL CATHETERISATION
     Dosage: UNKNOWN
     Route: 065
  2. BRILINTA [Suspect]
     Active Substance: TICAGRELOR
     Indication: ACUTE CORONARY SYNDROME
     Route: 048
  3. HEPARIN [Concomitant]
     Active Substance: HEPARIN SODIUM
     Indication: CATHETERISATION CARDIAC
     Route: 065
  4. BRILINTA [Suspect]
     Active Substance: TICAGRELOR
     Indication: ACUTE CORONARY SYNDROME
     Route: 048

REACTIONS (1)
  - Skin exfoliation [Unknown]
